FAERS Safety Report 7688205-8 (Version None)
Quarter: 2011Q3

REPORT INFORMATION
  Report Type: 
  Country: None (occurrence: None)
  Receive Date: 20110817
  Receipt Date: 20110527
  Transmission Date: 20111222
  Serious: No
  Sender: FDA-Public Use
  Company Number: US-GLAXOSMITHKLINE-A0930293A

PATIENT
  Age: 66 Year
  Sex: Male
  Weight: 65.9 kg

DRUGS (1)
  1. VOTRIENT [Suspect]
     Dosage: 800MG PER DAY
     Route: 065
     Dates: start: 20110527

REACTIONS (8)
  - WEIGHT DECREASED [None]
  - FATIGUE [None]
  - BLOOD PRESSURE INCREASED [None]
  - HAIR COLOUR CHANGES [None]
  - NAUSEA [None]
  - HYPOTRICHOSIS [None]
  - DIARRHOEA [None]
  - DECREASED APPETITE [None]
